FAERS Safety Report 9308545 (Version 2)
Quarter: 2013Q3

REPORT INFORMATION
  Report Type: Spontaneous
  Country: US (occurrence: US)
  Receive Date: 20130524
  Receipt Date: 20130701
  Transmission Date: 20140515
  Serious: Yes (Life-Threatening, Hospitalization, Other)
  Sender: FDA-Public Use
  Company Number: US-PFIZER INC-2013155913

PATIENT
  Age: 35 Year
  Sex: Female
  Weight: 86 kg

DRUGS (2)
  1. AZULFIDINE [Suspect]
     Indication: CROHN^S DISEASE
     Dosage: 500 MG, 4X/DAY
     Route: 048
     Dates: start: 2007
  2. NEXIUM [Concomitant]
     Dosage: UNK

REACTIONS (2)
  - Road traffic accident [Unknown]
  - General physical health deterioration [Unknown]
